FAERS Safety Report 12422940 (Version 1)
Quarter: 2016Q2

REPORT INFORMATION
  Report Type: Spontaneous
  Country: None (occurrence: None)
  Receive Date: 20160531
  Receipt Date: 20160531
  Transmission Date: 20160815
  Serious: No
  Sender: FDA-Public Use
  Company Number: None

PATIENT
  Age: 55 Year
  Sex: Male
  Weight: 145.15 kg

DRUGS (8)
  1. CLINDAMYCIN, 300 MG RANBAXY [Suspect]
     Active Substance: CLINDAMYCIN HYDROCHLORIDE
     Indication: TOOTH INFECTION
     Route: 048
     Dates: start: 20160518, end: 20160525
  2. GLIPIZIDE. [Concomitant]
     Active Substance: GLIPIZIDE
  3. BENAZAPRIL [Concomitant]
  4. METFORMIN [Concomitant]
     Active Substance: METFORMIN HYDROCHLORIDE
  5. ALLEGRA [Concomitant]
     Active Substance: FEXOFENADINE HYDROCHLORIDE
  6. HYDROCHLORTHIAZIDE [Concomitant]
     Active Substance: HYDROCHLOROTHIAZIDE
  7. TYLENOL [Concomitant]
     Active Substance: ACETAMINOPHEN
  8. PROVIOTICS [Concomitant]

REACTIONS (3)
  - Diarrhoea [None]
  - Abdominal pain upper [None]
  - Flatulence [None]

NARRATIVE: CASE EVENT DATE: 20160523
